FAERS Safety Report 9398615 (Version 2)
Quarter: 2013Q3

REPORT INFORMATION
  Report Type: Spontaneous
  Country: JP (occurrence: JP)
  Receive Date: 20130712
  Receipt Date: 20130930
  Transmission Date: 20140515
  Serious: Yes (Other)
  Sender: FDA-Public Use
  Company Number: PHHY2013JP072670

PATIENT
  Sex: Male

DRUGS (9)
  1. CEFTRIAXONE SODIUM SANDOZ [Suspect]
     Indication: MENINGITIS
     Dosage: 4 G, UNK
     Route: 042
     Dates: start: 20130522, end: 20130614
  2. LOXONIN [Concomitant]
     Indication: CHONDROCALCINOSIS PYROPHOSPHATE
  3. TAKEPRON [Concomitant]
     Indication: CHONDROCALCINOSIS PYROPHOSPHATE
     Route: 048
  4. BETANIS [Concomitant]
     Indication: HYPERTONIC BLADDER
     Route: 048
  5. POLARAMINE [Concomitant]
     Route: 048
  6. VANCOMYCIN HYDROCHLORIDE [Concomitant]
  7. DECADRON                                /CAN/ [Concomitant]
  8. HUMULIN R [Concomitant]
  9. LANTUS [Concomitant]

REACTIONS (2)
  - Cholecystitis acute [Recovering/Resolving]
  - Abdominal pain [Recovered/Resolved]
